FAERS Safety Report 8033717-0 (Version None)
Quarter: 2012Q1

REPORT INFORMATION
  Report Type: 
  Country: None (occurrence: None)
  Receive Date: 20120110
  Receipt Date: 20120102
  Transmission Date: 20120608
  Serious: Yes (Other)
  Sender: FDA-Public Use
  Company Number: US-GLAXOSMITHKLINE-A0956939A

PATIENT

DRUGS (1)
  1. FONDAPARINUX SODIUM [Suspect]
     Indication: PRODUCT USED FOR UNKNOWN INDICATION
     Dosage: 7.5MG UNKNOWN

REACTIONS (3)
  - THROMBOSIS [None]
  - PRODUCT QUALITY ISSUE [None]
  - DRUG INEFFECTIVE [None]
